FAERS Safety Report 18046115 (Version 1)
Quarter: 2020Q3

REPORT INFORMATION
  Report Type: Spontaneous
  Country: NO (occurrence: NO)
  Receive Date: 20200720
  Receipt Date: 20200720
  Transmission Date: 20201103
  Serious: Yes (Life-Threatening, Other)
  Sender: FDA-Public Use
  Company Number: NO-009507513-2007NOR007088

PATIENT
  Age: 16 Year
  Sex: Female
  Weight: 67 kg

DRUGS (1)
  1. NEXPLANON [Suspect]
     Active Substance: ETONOGESTREL
     Indication: CONTRACEPTION
     Dosage: CONTRACEPTIVE IMPLANT IN ARM (1 TOTAL)
     Dates: start: 20150101, end: 20200709

REACTIONS (11)
  - Mood swings [Unknown]
  - Depressed mood [Recovered/Resolved]
  - Suicidal ideation [Unknown]
  - Insomnia [Recovered/Resolved]
  - Nausea [Unknown]
  - Pain [Unknown]
  - Vomiting [Unknown]
  - Dizziness [Unknown]
  - Diarrhoea [Unknown]
  - Infection [Unknown]
  - Libido decreased [Unknown]

NARRATIVE: CASE EVENT DATE: 20150118
